FAERS Safety Report 16996028 (Version 2)
Quarter: 2019Q4

REPORT INFORMATION
  Report Type: Spontaneous
  Country: US (occurrence: US)
  Receive Date: 20191105
  Receipt Date: 20191120
  Transmission Date: 20200122
  Serious: No
  Sender: FDA-Public Use
  Company Number: US-SA-2019SA297763

PATIENT
  Age: 42 Year
  Sex: Male
  Weight: 87.53 kg

DRUGS (9)
  1. VITAMIN D [VITAMIN D NOS] [Concomitant]
     Active Substance: VITAMIN D NOS
     Indication: VITAMIN D DEFICIENCY
     Dosage: 2000 IU, QD MORE THAN 5 YEARS
     Route: 048
  2. DUPIXENT [Suspect]
     Active Substance: DUPILUMAB
     Indication: ASTHMA
     Dosage: 300 MG, QOW
     Route: 058
     Dates: start: 20181204
  3. ALBUTEROL [SALBUTAMOL] [Concomitant]
     Active Substance: ALBUTEROL
     Indication: ASTHMA
     Dosage: MDI OR NEBULIZER SINCE 40 YEARS PRN
  4. ADVAIR HFA [Concomitant]
     Active Substance: FLUTICASONE PROPIONATE\SALMETEROL XINAFOATE
     Indication: ASTHMA
     Dosage: 500/50, BID SINCE MORE THAN 5 YEARS
     Route: 055
  5. PANTOPRAZOLE [Concomitant]
     Active Substance: PANTOPRAZOLE
     Indication: BARRETT^S OESOPHAGUS
     Dosage: 40 MG, QD 3 MONTHS
     Route: 048
     Dates: start: 2019
  6. MONTELUKAST [Concomitant]
     Active Substance: MONTELUKAST SODIUM
     Indication: ASTHMA
     Dosage: 10 MG, QID MORE THAN 5 YEARS
     Route: 048
  7. FLONASE [Concomitant]
     Active Substance: FLUTICASONE PROPIONATE
     Indication: SEASONAL ALLERGY
     Dosage: 2 DF QD EACH NOSTRIL MORE THAN 5 YEARS
     Route: 045
  8. ALLEGRA [Concomitant]
     Active Substance: FEXOFENADINE HYDROCHLORIDE
     Indication: SEASONAL ALLERGY
     Dosage: 80 MG, QD APPROXIMATELY 3 MONTHS
     Route: 048
     Dates: start: 2019
  9. SPIRIVA RESPIMAT [Concomitant]
     Active Substance: TIOTROPIUM BROMIDE
     Indication: ASTHMA
     Dosage: 2 PUFFS, QD, MORE THAN 1 YEARS
     Route: 055

REACTIONS (4)
  - Keratitis [Unknown]
  - Chalazion [Recovered/Resolved]
  - Blepharitis [Unknown]
  - Eye discharge [Recovered/Resolved]

NARRATIVE: CASE EVENT DATE: 20191022
